FAERS Safety Report 5316732-7 (Version None)
Quarter: 2007Q2

REPORT INFORMATION
  Report Type: 
  Country: None (occurrence: None)
  Receive Date: 20070504
  Receipt Date: 20070427
  Transmission Date: 20071010
  Serious: Yes (Hospitalization)
  Sender: FDA-Public Use
  Company Number: 2007AP02509

PATIENT
  Age: 24335 Day
  Sex: Female
  Weight: 53 kg

DRUGS (2)
  1. IRESSA [Suspect]
     Indication: NON-SMALL CELL LUNG CANCER
     Route: 048
     Dates: start: 20070328, end: 20070418
  2. RADIOTHERAPY [Concomitant]
     Dosage: TOTAL DOSE = 35 GY TO SACROILIAC REGION
     Dates: start: 20070327, end: 20070413

REACTIONS (3)
  - ALANINE AMINOTRANSFERASE INCREASED [None]
  - DIARRHOEA [None]
  - PSEUDOMEMBRANOUS COLITIS [None]
